FAERS Safety Report 5183524-1 (Version None)
Quarter: 2006Q4

REPORT INFORMATION
  Report Type: 
  Country: None (occurrence: None)
  Receive Date: 20061220
  Receipt Date: 20060118
  Transmission Date: 20070319
  Serious: No
  Sender: FDA-Public Use
  Company Number: US-GLAXOSMITHKLINE-A0589825A

PATIENT
  Age: 47 Year
  Sex: Female

DRUGS (1)
  1. EQUATE NTS 21MG [Suspect]
     Indication: SMOKING CESSATION THERAPY
     Dates: start: 20060110, end: 20060117

REACTIONS (3)
  - PALMAR ERYTHEMA [None]
  - PRURITUS [None]
  - URTICARIA [None]
